FAERS Safety Report 18643850 (Version 1)
Quarter: 2020Q4

REPORT INFORMATION
  Report Type: Spontaneous
  Country: US (occurrence: US)
  Receive Date: 20201221
  Receipt Date: 20201221
  Transmission Date: 20210114
  Serious: Yes (Death)
  Sender: FDA-Public Use
  Company Number: None

PATIENT
  Age: 65 Year
  Sex: Female

DRUGS (19)
  1. VITMAIN D2 50,000UNITS [Concomitant]
  2. RETACRIT 10,000 U [Concomitant]
  3. ONE TOUCH DELICA LANCETS [Concomitant]
  4. PREDNISONE 5MG [Concomitant]
     Active Substance: PREDNISONE
  5. METRONIDAZOLE 500MG [Concomitant]
     Active Substance: METRONIDAZOLE
  6. LACTOBACILLUS ACIDOPHILUS\LACTOBACILLUS BULGARICUS [Concomitant]
     Active Substance: LACTOBACILLUS ACIDOPHILUS\LACTOBACILLUS DELBRUECKII SUBSP. BULGARICUS
  7. TACROLIMUS 0.5MG [Concomitant]
     Active Substance: TACROLIMUS
  8. PANTOPRAZOLE 40MG [Concomitant]
     Active Substance: PANTOPRAZOLE SODIUM
  9. VANCOMYCIN 250MG [Concomitant]
  10. BACTRIM REGULAR STRENGTH [Concomitant]
  11. PROCRIT [Concomitant]
     Active Substance: ERYTHROPOIETIN
  12. NIFEDIPINE 30MG [Concomitant]
     Active Substance: NIFEDIPINE
  13. VALGANGCICLOVIR 450MG [Concomitant]
  14. MYCOPHENOLIC ACID. [Suspect]
     Active Substance: MYCOPHENOLIC ACID
     Indication: RENAL TRANSPLANT
     Route: 048
     Dates: start: 20200923
  15. ONE TOUCH ULTRA BLUE TEST STRIPS [Concomitant]
  16. PERCOCET 5/325MG [Concomitant]
  17. PHOSPHA 250MG [Concomitant]
  18. MAGNESIUM OXIDE 400MG [Concomitant]
     Active Substance: MAGNESIUM OXIDE
  19. TACROLIMUS 1MG [Concomitant]
     Active Substance: TACROLIMUS

REACTIONS (1)
  - Death [None]

NARRATIVE: CASE EVENT DATE: 20201207
